FAERS Safety Report 9767631 (Version 4)
Quarter: 2014Q4

REPORT INFORMATION
  Report Type: Spontaneous
  Country: JP (occurrence: JP)
  Receive Date: 20131217
  Receipt Date: 20141226
  Transmission Date: 20150529
  Serious: Yes (Death, Other)
  Sender: FDA-Public Use
  Company Number: PHHY2013JP130493

PATIENT
  Age: 58 Year
  Sex: Female

DRUGS (5)
  1. ZOMETA [Suspect]
     Active Substance: ZOLEDRONIC ACID
     Indication: BREAST CANCER
     Dosage: 4 MG, (PER ADMINISTRATION)
     Route: 041
  2. ZOMETA [Suspect]
     Active Substance: ZOLEDRONIC ACID
     Indication: METASTASES TO BONE
  3. LETROZOLE. [Suspect]
     Active Substance: LETROZOLE
     Indication: BREAST CANCER
     Route: 065
  4. TAMOXIFEN [Suspect]
     Active Substance: TAMOXIFEN
     Indication: METASTASES TO BONE
     Route: 065
  5. LETROZOLE. [Suspect]
     Active Substance: LETROZOLE
     Indication: METASTASES TO BONE

REACTIONS (13)
  - Renal impairment [Fatal]
  - Liver disorder [Fatal]
  - Osteosclerosis [Unknown]
  - Anaemia [Fatal]
  - Pain in extremity [Unknown]
  - Fall [Unknown]
  - Metastases to liver [Unknown]
  - Metastases to bone [Unknown]
  - Exostosis [Unknown]
  - Breast cancer [Fatal]
  - Atypical femur fracture [Unknown]
  - Malignant neoplasm progression [Unknown]
  - Metastases to spine [Unknown]
